FAERS Safety Report 8120579-6 (Version None)
Quarter: 2012Q1

REPORT INFORMATION
  Report Type: 
  Country: None (occurrence: None)
  Receive Date: 20120207
  Receipt Date: 20120130
  Transmission Date: 20120608
  Serious: Yes (Disabling)
  Sender: FDA-Public Use
  Company Number: GB-GILEAD-2011-0048184

PATIENT
  Sex: Male

DRUGS (7)
  1. ALFAROL [Concomitant]
  2. ALENDRONATE SODIUM [Concomitant]
     Indication: OSTEOPOROSIS
     Dosage: UNK
     Route: 048
     Dates: start: 20111204
  3. ALENDRONATE SODIUM [Concomitant]
     Route: 048
     Dates: end: 20111204
  4. HEPSERA [Suspect]
     Indication: HEPATITIS B
     Dosage: 10 MG, QD
     Route: 048
     Dates: start: 20031127, end: 20111204
  5. HEPSERA [Suspect]
     Dosage: 10MG PER DAY
     Route: 048
     Dates: start: 20031127, end: 20111204
  6. LAMIVUDINE [Concomitant]
     Indication: HEPATITIS B
     Dosage: 100MG PER DAY
     Route: 048
     Dates: start: 20020520, end: 20111204
  7. BARACLUDE                          /03597801/ [Concomitant]

REACTIONS (4)
  - BLOOD PHOSPHORUS DECREASED [None]
  - FANCONI SYNDROME ACQUIRED [None]
  - BETA 2 MICROGLOBULIN URINE INCREASED [None]
  - ARTHRALGIA [None]
